FAERS Safety Report 4448840-7 (Version None)
Quarter: 2004Q3

REPORT INFORMATION
  Report Type: 
  Country: None (occurrence: None)
  Receive Date: 20040909
  Receipt Date: 20040831
  Transmission Date: 20050211
  Serious: Yes (Hospitalization)
  Sender: FDA-Public Use
  Company Number: GBWYE010901SEP04

PATIENT
  Age: 55 Year
  Sex: Male

DRUGS (3)
  1. EFFEXOR [Suspect]
     Dosage: OVERDOSE ORAL
     Route: 048
     Dates: start: 20040801, end: 20040801
  2. CLOZARIL [Suspect]
     Indication: SCHIZOPHRENIA
     Dosage: 3-4 DAYS SUPPLY (1,200 TO 1,600MG) ORAL
     Route: 048
     Dates: start: 20030602
  3. CLOZARIL [Suspect]
     Indication: SCHIZOPHRENIA
     Dosage: 3-4 DAYS SUPPLY (1,200 TO 1,600MG) ORAL
     Route: 048
     Dates: start: 20040801

REACTIONS (4)
  - AMNESIA [None]
  - LIMB DISCOMFORT [None]
  - MULTIPLE DRUG OVERDOSE [None]
  - PERIORBITAL HAEMATOMA [None]
